FAERS Safety Report 14340908 (Version 1)
Quarter: 2018Q1

REPORT INFORMATION
  Report Type: Spontaneous
  Country: NO (occurrence: NO)
  Receive Date: 20180102
  Receipt Date: 20180102
  Transmission Date: 20180509
  Serious: Yes (Hospitalization)
  Sender: FDA-Public Use
  Company Number: NO-CONCORDIA PHARMACEUTICALS INC.-E2B_00009243

PATIENT
  Age: 74 Year
  Sex: Female

DRUGS (7)
  1. RENITEC COMP [Concomitant]
     Active Substance: ENALAPRIL MALEATE\HYDROCHLOROTHIAZIDE
     Indication: HYPERTENSION
  2. EZETROL [Concomitant]
     Active Substance: EZETIMIBE
  3. SOMAC [Concomitant]
     Active Substance: PANTOPRAZOLE SODIUM
  4. FOLSYRE NAF [Concomitant]
     Active Substance: FOLIC ACID
  5. DETRUSITOL [Concomitant]
     Active Substance: TOLTERODINE TARTRATE
  6. PREDNISOLONE. [Suspect]
     Active Substance: PREDNISOLONE
     Indication: RHEUMATOID ARTHRITIS
     Dates: start: 2008
  7. METHOTREXATE. [Suspect]
     Active Substance: METHOTREXATE
     Indication: RHEUMATOID ARTHRITIS
     Dosage: MIGHT HAVE USED THE MEDICATION DAILY
     Dates: start: 2008, end: 201709

REACTIONS (3)
  - Agranulocytosis [Recovering/Resolving]
  - Medication error [Recovering/Resolving]
  - Pancytopenia [Recovering/Resolving]

NARRATIVE: CASE EVENT DATE: 201709
